FAERS Safety Report 8234284-9 (Version None)
Quarter: 2012Q1

REPORT INFORMATION
  Report Type: 
  Country: None (occurrence: None)
  Receive Date: 20120326
  Receipt Date: 20120315
  Transmission Date: 20120608
  Serious: Yes (Other)
  Sender: FDA-Public Use
  Company Number: ES-JNJFOC-20120301652

PATIENT
  Sex: Male
  Weight: 125 kg

DRUGS (7)
  1. AMLODIPINE [Concomitant]
     Indication: MYOCARDIAL ISCHAEMIA
     Route: 065
  2. METHOTREXATE [Concomitant]
     Indication: PSORIASIS
     Route: 065
  3. STELARA [Suspect]
     Indication: PSORIASIS
     Route: 058
     Dates: start: 20100916, end: 20120105
  4. BISOPROLOL FUMARATE [Concomitant]
     Indication: MYOCARDIAL ISCHAEMIA
     Route: 065
  5. FOLIC ACID [Concomitant]
     Indication: PRODUCT USED FOR UNKNOWN INDICATION
     Route: 065
  6. ASPIRIN [Concomitant]
     Indication: MYOCARDIAL ISCHAEMIA
     Route: 065
  7. SIMVASTATIN [Concomitant]
     Indication: DYSLIPIDAEMIA
     Route: 065

REACTIONS (2)
  - COLON ADENOMA [None]
  - COLON CANCER [None]
